FAERS Safety Report 5252994-2 (Version None)
Quarter: 2007Q1

REPORT INFORMATION
  Report Type: 
  Country: None (occurrence: None)
  Receive Date: 20070227
  Receipt Date: 20070208
  Transmission Date: 20070707
  Serious: Yes (Other)
  Sender: FDA-Public Use
  Company Number: 15689

PATIENT
  Age: 14 Hour
  Sex: Male
  Weight: 2.58 kg

DRUGS (4)
  1. ACYCLOVIR [Suspect]
     Indication: ENCEPHALITIS VIRAL
     Dosage: 50 MG FREQ IV
     Route: 042
     Dates: start: 20070123, end: 20070123
  2. ACYCLOVIR [Suspect]
     Indication: SEPSIS
     Dosage: 50 MG FREQ IV
     Route: 042
     Dates: start: 20070123, end: 20070123
  3. PENICILLIN G [Concomitant]
  4. GENTAMICIN [Concomitant]

REACTIONS (1)
  - SKIN DEPIGMENTATION [None]
